FAERS Safety Report 13457060 (Version 7)
Quarter: 2022Q2

REPORT INFORMATION
  Report Type: Spontaneous
  Country: BR (occurrence: BR)
  Receive Date: 20170419
  Receipt Date: 20220520
  Transmission Date: 20220720
  Serious: Yes (Hospitalization, Disabling, Other)
  Sender: FDA-Public Use
  Company Number: BR-BIOMARINAP-BR-2017-113642

PATIENT
  Age: 9 Year
  Sex: Male
  Weight: 63 kg

DRUGS (3)
  1. VIMIZIM [Suspect]
     Active Substance: ELOSULFASE ALFA
     Indication: Mucopolysaccharidosis IV
     Dosage: UNK UNK, QW
     Route: 042
     Dates: start: 20160101
  2. HYDROCHLOROTHIAZIDE [Concomitant]
     Active Substance: HYDROCHLOROTHIAZIDE
     Indication: Blood pressure abnormal
     Dosage: 25 MILLIGRAM
  3. GABAPENTIN [Concomitant]
     Active Substance: GABAPENTIN
     Indication: Back pain
     Dosage: 300 MILLIGRAM

REACTIONS (14)
  - Arthralgia [Not Recovered/Not Resolved]
  - Pain in extremity [Not Recovered/Not Resolved]
  - Limb deformity [Recovered/Resolved]
  - Gait inability [Unknown]
  - Gait disturbance [Unknown]
  - Weight increased [Unknown]
  - Deformity [Recovered/Resolved]
  - Sinusitis [Unknown]
  - Pectus carinatum [Unknown]
  - Back pain [Unknown]
  - Blood pressure abnormal [Unknown]
  - Muscular weakness [Recovering/Resolving]
  - Fatigue [Recovering/Resolving]
  - Dyspnoea [Unknown]
